FAERS Safety Report 15690146 (Version 1)
Quarter: 2018Q4

REPORT INFORMATION
  Report Type: Report from Study
  Country: None (occurrence: PT)
  Receive Date: 20181205
  Receipt Date: 20181205
  Transmission Date: 20190205
  Serious: Yes (Other)
  Sender: FDA-Public Use
  Company Number: PT-BAUSCH-BL-2018-033576

PATIENT

DRUGS (2)
  1. DOBUTAMINA CLARIS [Suspect]
     Active Substance: DOBUTAMINE HYDROCHLORIDE
     Indication: CARDIAC PHARMACOLOGIC STRESS TEST
     Dosage: 3 MINUTES STAGES WITH PROGRESSIVE INCREMENT OF DOBUTAMINE DOSES 10, 20, 30 AND 40 MICROGRAM/KILOGRAM
     Route: 065
  2. ATROPINE. [Suspect]
     Active Substance: ATROPINE
     Indication: CARDIAC PHARMACOLOGIC STRESS TEST
     Dosage: AT MINUTE 6, 7, 8 AND 9
     Route: 065

REACTIONS (1)
  - Atrial fibrillation [Unknown]
